FAERS Safety Report 9039481 (Version 1)
Quarter: 2013Q1

REPORT INFORMATION
  Report Type: Spontaneous
  Country: CA (occurrence: CA)
  Receive Date: 20130129
  Receipt Date: 20130129
  Transmission Date: 20140127
  Serious: Yes (Death)
  Sender: FDA-Public Use
  Company Number: CA-ABBOTT-13P-028-1041585-00

PATIENT
  Age: 27 Year
  Sex: Female

DRUGS (12)
  1. VALPROIC ACID [Suspect]
     Indication: PRODUCT USED FOR UNKNOWN INDICATION
  2. ISOFLURANE [Suspect]
     Indication: PRODUCT USED FOR UNKNOWN INDICATION
  3. CLOBAZAM [Suspect]
     Indication: PRODUCT USED FOR UNKNOWN INDICATION
  4. IMMUNE GLOBULIN HUMAN [Suspect]
     Indication: PRODUCT USED FOR UNKNOWN INDICATION
  5. KETAMINE HYDROCHLORIDE [Suspect]
     Indication: PRODUCT USED FOR UNKNOWN INDICATION
  6. LEVETIRACETAM [Suspect]
     Indication: PRODUCT USED FOR UNKNOWN INDICATION
  7. MAGNESIUM [Suspect]
     Indication: PRODUCT USED FOR UNKNOWN INDICATION
  8. MIDAZOLAM [Suspect]
     Indication: PRODUCT USED FOR UNKNOWN INDICATION
  9. OXCARBARBAZEPINE [Suspect]
     Indication: PRODUCT USED FOR UNKNOWN INDICATION
  10. TOPIRAMATE [Suspect]
     Indication: PRODUCT USED FOR UNKNOWN INDICATION
  11. VIMPAT [Suspect]
     Indication: PRODUCT USED FOR UNKNOWN INDICATION
  12. PROPOFOL [Suspect]
     Indication: PRODUCT USED FOR UNKNOWN INDICATION

REACTIONS (5)
  - Arrhythmia [Fatal]
  - Metabolic acidosis [Fatal]
  - Mitochondrial DNA mutation [Fatal]
  - Propofol infusion syndrome [Fatal]
  - Shock [Fatal]
